FAERS Safety Report 13402489 (Version 1)
Quarter: 2017Q2

REPORT INFORMATION
  Report Type: Spontaneous
  Country: None (occurrence: JP)
  Receive Date: 20170404
  Receipt Date: 20170404
  Transmission Date: 20170830
  Serious: Yes (Other)
  Sender: FDA-Public Use
  Company Number: JP-ALLERGAN-1713086US

PATIENT
  Age: 60 Year
  Sex: Male

DRUGS (2)
  1. SILODOSIN - BP [Suspect]
     Active Substance: SILODOSIN
     Dosage: 2 MG, QD
     Route: 048
     Dates: start: 201307, end: 201307
  2. SILODOSIN - BP [Suspect]
     Active Substance: SILODOSIN
     Indication: DYSURIA
     Dosage: 4 MG, QD
     Route: 048
     Dates: start: 201307, end: 201308

REACTIONS (2)
  - Drug-induced liver injury [Unknown]
  - Drug eruption [Unknown]
